FAERS Safety Report 8464666-1 (Version None)
Quarter: 2012Q2

REPORT INFORMATION
  Report Type: 
  Country: None (occurrence: None)
  Receive Date: 20120626
  Receipt Date: 20120615
  Transmission Date: 20120825
  Serious: Yes (Hospitalization)
  Sender: FDA-Public Use
  Company Number: US-JNJFOC-20120608531

PATIENT
  Sex: Female
  Weight: 67.13 kg

DRUGS (12)
  1. FENTANYL [Suspect]
     Indication: CONNECTIVE TISSUE DISORDER
     Dosage: 50MCG/4-EVERY48 HOURS
     Route: 062
  2. LEVOTHYROXINE SODIUM [Concomitant]
     Indication: PRODUCT USED FOR UNKNOWN INDICATION
     Route: 065
  3. NUVIGIL [Concomitant]
     Indication: ATTENTION DEFICIT/HYPERACTIVITY DISORDER
     Route: 048
  4. KLONOPIN [Concomitant]
     Indication: PRODUCT USED FOR UNKNOWN INDICATION
     Dosage: 1 MG
     Route: 048
  5. FENTANYL [Suspect]
     Route: 062
     Dates: start: 20091001
  6. OXYCONTIN [Suspect]
     Indication: PRODUCT USED FOR UNKNOWN INDICATION
     Route: 065
  7. CYMBALTA [Concomitant]
     Indication: ANXIETY
     Route: 048
  8. MORPHINE [Suspect]
     Indication: PRODUCT USED FOR UNKNOWN INDICATION
     Route: 065
  9. FENTANYL [Suspect]
     Route: 062
     Dates: start: 20040101
  10. DURAGESIC-100 [Suspect]
     Indication: CONNECTIVE TISSUE DISORDER
     Dosage: 100MCG/2-EVERY 48 HOURS
     Route: 062
     Dates: start: 20120101
  11. MOTRIN [Concomitant]
     Indication: PAIN
     Dosage: 250 MG
     Route: 048
  12. OXYCODONE HCL [Concomitant]
     Indication: PAIN
     Route: 048

REACTIONS (4)
  - MEMORY IMPAIRMENT [None]
  - BODY HEIGHT DECREASED [None]
  - JOINT SWELLING [None]
  - DRUG INEFFECTIVE [None]
